FAERS Safety Report 25718748 (Version 2)
Quarter: 2025Q3

REPORT INFORMATION
  Report Type: Spontaneous
  Country: US (occurrence: US)
  Receive Date: 20250823
  Receipt Date: 20250913
  Transmission Date: 20251020
  Serious: Yes (Other)
  Sender: AUROBINDO
  Company Number: US-MLMSERVICE-20250811-PI603797-00057-2

PATIENT
  Age: 6 Decade
  Sex: Male

DRUGS (7)
  1. ATORVASTATIN [Suspect]
     Active Substance: ATORVASTATIN
     Indication: Product used for unknown indication
     Route: 065
     Dates: start: 2024
  2. AZATHIOPRINE [Concomitant]
     Active Substance: AZATHIOPRINE
     Indication: Dermatomyositis
     Route: 065
  3. PREDNISONE [Concomitant]
     Active Substance: PREDNISONE
     Indication: Dermatomyositis
     Route: 065
  4. ANIFROLUMAB [Concomitant]
     Active Substance: ANIFROLUMAB
     Indication: Dermatomyositis
     Route: 065
     Dates: start: 2024
  5. METHOTREXATE [Concomitant]
     Active Substance: METHOTREXATE
     Indication: Dermatomyositis
     Dosage: 12.5 MILLIGRAM
     Route: 065
  6. UPADACITINIB [Concomitant]
     Active Substance: UPADACITINIB
     Indication: Dermatomyositis
     Route: 065
     Dates: start: 2024
  7. Immunoglobulin [Concomitant]
     Indication: Dermatomyositis
     Route: 042

REACTIONS (3)
  - Blood creatine phosphokinase increased [Recovering/Resolving]
  - Condition aggravated [Recovering/Resolving]
  - Hypertransaminasaemia [Unknown]

NARRATIVE: CASE EVENT DATE: 20240101
